FAERS Safety Report 9960786 (Version 1)
Quarter: 2014Q1

REPORT INFORMATION
  Report Type: Spontaneous
  Country: US (occurrence: None)
  Receive Date: 20140127
  Receipt Date: 20140127
  Transmission Date: 20141002
  Serious: Yes (Hospitalization)
  Sender: FDA-Public Use
  Company Number: 1252484

PATIENT
  Age: 51 Year
  Sex: Male

DRUGS (3)
  1. ACTILYSE [Suspect]
     Indication: THROMBOSIS IN DEVICE
     Dosage: (20 MG) , INTRAVENOUS (NOT OTHERWISE SPECIFIED)
     Route: 042
  2. HEPARIN [Suspect]
     Indication: ANTICOAGULANT THERAPY
     Dosage: INTRAVENOUS  (NOT OTHERWISE SPECIFIED)  THERAPY STOPPED
     Route: 041
  3. MILRINONE (MILRINONE) [Concomitant]

REACTIONS (1)
  - Drug ineffective [None]
